FAERS Safety Report 10174920 (Version 1)
Quarter: 2014Q2

REPORT INFORMATION
  Report Type: Spontaneous
  Country: US (occurrence: None)
  Receive Date: 20140416
  Receipt Date: 20140416
  Transmission Date: 20141212
  Serious: No
  Sender: FDA-Public Use
  Company Number: 163-POMAL-14022591

PATIENT
  Age: 63 Year
  Sex: Female
  Weight: 59.9 kg

DRUGS (17)
  1. POMALYST [Suspect]
     Indication: PLASMA CELL MYELOMA
     Dosage: 4 MG, 21 IN 21 D, PO
     Route: 048
     Dates: start: 20130517
  2. ACYCLOVIR (ACICLOVIR) [Concomitant]
  3. BACITRACIN (BACITRACIN) [Concomitant]
  4. DEXAMETHASONE (DEXAMETHASONE) [Concomitant]
  5. DULCOLAX (BISACODYL) [Concomitant]
  6. ECOTRIN (ACETYLSALICYLIC ACID) [Concomitant]
  7. LEXAPRO (ESCITALOPRAM OXALATE) [Concomitant]
  8. MINOCYCLINE HCL (MINOCYCLINE HYDROCHLORIDE) [Concomitant]
  9. MIRALAX (MACROGOL) [Concomitant]
  10. OXYCONTIN (OXYCODONE HYDROCHLORIDE) [Concomitant]
  11. PEPCID (FAMOTIDINE) [Concomitant]
  12. PRILOSEC (OMEPRAZOLE) [Concomitant]
  13. RESTASIS (CICLOSPORIN) [Concomitant]
  14. SENOKOT (SENNA FRUIT) [Concomitant]
  15. TRAZODONE HCL (TRAZODONE HYDROCHLORIDE) [Concomitant]
  16. ZETONNA (CICLESONIDE) [Concomitant]
  17. DECADRON (DEXAMETHASONE) [Concomitant]

REACTIONS (2)
  - Drug dose omission [None]
  - No adverse event [None]
